FAERS Safety Report 5090131-8 (Version None)
Quarter: 2006Q3

REPORT INFORMATION
  Report Type: 
  Country: None (occurrence: None)
  Receive Date: 20060828
  Receipt Date: 20060822
  Transmission Date: 20061208
  Serious: Yes (Other)
  Sender: FDA-Public Use
  Company Number: JP-MERCK-0608USA05467

PATIENT
  Age: 70 Year
  Sex: Male

DRUGS (4)
  1. PEPCID [Suspect]
     Route: 048
  2. LIPITOR [Suspect]
     Route: 048
  3. BONALON [Concomitant]
     Route: 048
  4. BACTRIM [Concomitant]
     Route: 048

REACTIONS (1)
  - HAEMOLYTIC URAEMIC SYNDROME [None]
